FAERS Safety Report 7941586 (Version 3)
Quarter: 2015Q1

REPORT INFORMATION
  Report Type: Spontaneous
  Country: US (occurrence: US)
  Receive Date: 20110512
  Receipt Date: 20150106
  Transmission Date: 20150721
  Serious: Yes (Hospitalization)
  Sender: FDA-Public Use
  Company Number: US-BAYER-2011-039937

PATIENT
  Age: 32 Year
  Sex: Female
  Weight: 89 kg

DRUGS (4)
  1. YAZ [Suspect]
     Active Substance: DROSPIRENONE\ETHINYL ESTRADIOL
     Indication: MENSTRUATION IRREGULAR
     Dosage: UNK
     Dates: start: 200902, end: 200904
  2. NAPROXEN. [Concomitant]
     Active Substance: NAPROXEN
     Dosage: UNK
     Dates: start: 200809, end: 200911
  3. BACLOFEN. [Concomitant]
     Active Substance: BACLOFEN
  4. ALEVE [Concomitant]
     Active Substance: NAPROXEN SODIUM
     Dosage: UNK
     Dates: start: 200904

REACTIONS (8)
  - Injury [None]
  - Pain [None]
  - Transient ischaemic attack [None]
  - Cerebrovascular accident [None]
  - Anxiety [None]
  - Mental disorder [None]
  - Depression [None]
  - Anhedonia [None]

NARRATIVE: CASE EVENT DATE: 20090424
